FAERS Safety Report 23320722 (Version 1)
Quarter: 2023Q4

REPORT INFORMATION
  Report Type: Report from Study
  Country: IN (occurrence: None)
  Receive Date: 20231220
  Receipt Date: 20231220
  Transmission Date: 20240109
  Serious: Yes (Other)
  Sender: FDA-Public Use
  Company Number: 2023A287310

PATIENT
  Age: 49 Year
  Sex: Female
  Weight: 55 kg

DRUGS (1)
  1. LYNPARZA [Suspect]
     Active Substance: OLAPARIB
     Indication: Chemotherapy
     Route: 048
     Dates: start: 20230827

REACTIONS (2)
  - Carbohydrate antigen 125 increased [Not Recovered/Not Resolved]
  - Blood iron increased [Not Recovered/Not Resolved]
